FAERS Safety Report 23311824 (Version 1)
Quarter: 2023Q4

REPORT INFORMATION
  Report Type: Spontaneous
  Country: US (occurrence: US)
  Receive Date: 20231219
  Receipt Date: 20231219
  Transmission Date: 20240110
  Serious: No
  Sender: FDA-Public Use
  Company Number: US-BRISTOL-MYERS SQUIBB COMPANY-2023-183408

PATIENT
  Age: 80 Year
  Sex: Male
  Weight: 49.9 kg

DRUGS (2)
  1. REVLIMID [Suspect]
     Active Substance: LENALIDOMIDE
     Indication: Plasma cell myeloma
     Dosage: FREQ: 1XONMON,WED,FRI
     Route: 048
  2. NINLARO [Concomitant]
     Active Substance: IXAZOMIB CITRATE
     Indication: Plasma cell myeloma
     Dosage: FREQ: ONCE WKLY ON FRIDAY^S X 3 WKS ON, 1 WK OFF
     Route: 048

REACTIONS (2)
  - Diarrhoea [Unknown]
  - Off label use [Unknown]
